FAERS Safety Report 10377595 (Version 1)
Quarter: 2014Q1

REPORT INFORMATION
  Report Type: Spontaneous
  Country: US (occurrence: None)
  Receive Date: 20140306
  Receipt Date: 20140306
  Transmission Date: 20141002
  Serious: Yes (Hospitalization)
  Sender: FDA-Public Use
  Company Number: 163-21880-13033648

PATIENT
  Age: 48 Year
  Sex: Female

DRUGS (5)
  1. REVLIMID (LENALIDOMIDE) CAPSULES [Suspect]
     Indication: PLASMA CELL MYELOMA
     Dosage: 21 IN 21 D
     Route: 048
     Dates: start: 20130307
  2. CARVEDILOL [Concomitant]
  3. CRESTOR (ROSUVASTATIN) [Concomitant]
  4. IRON [Concomitant]
  5. WARFARIN SODIUM [Concomitant]

REACTIONS (1)
  - Renal failure [None]
